FAERS Safety Report 4318261-6 (Version None)
Quarter: 2004Q1

REPORT INFORMATION
  Report Type: 
  Country: None (occurrence: None)
  Receive Date: 20040315
  Receipt Date: 20040127
  Transmission Date: 20041129
  Serious: No
  Sender: FDA-Public Use
  Company Number: 2004196116US

PATIENT
  Age: 33 Year
  Sex: Female

DRUGS (3)
  1. BEXTRA [Suspect]
     Dosage: 20 MG
  2. TYLENOL [Suspect]
  3. ACIPHEX [Concomitant]

REACTIONS (1)
  - LOSS OF CONSCIOUSNESS [None]
